FAERS Safety Report 4600244-X (Version None)
Quarter: 2005Q1

REPORT INFORMATION
  Report Type: 
  Country: None (occurrence: None)
  Receive Date: 20050307
  Receipt Date: 20050302
  Transmission Date: 20050727
  Serious: Yes (Disabling)
  Sender: FDA-Public Use
  Company Number: US-GLAXOSMITHKLINE-A0547988A

PATIENT
  Age: 21 Year
  Sex: Male

DRUGS (2)
  1. LAMICTAL [Suspect]
     Indication: BIPOLAR DISORDER
     Route: 048
  2. STRATTERA [Concomitant]

REACTIONS (3)
  - HYPERPLASIA [None]
  - MUSCLE SPASMS [None]
  - MYASTHENIC SYNDROME [None]
